FAERS Safety Report 5134011-8 (Version None)
Quarter: 2006Q4

REPORT INFORMATION
  Report Type: 
  Country: None (occurrence: None)
  Receive Date: 20061018
  Receipt Date: 20061011
  Transmission Date: 20070319
  Serious: Yes (Life-Threatening, Hospitalization, Other)
  Sender: FDA-Public Use
  Company Number: 230236M06USA

PATIENT
  Age: 62 Year
  Sex: Female

DRUGS (3)
  1. REBIF [Suspect]
     Indication: MULTIPLE SCLEROSIS
     Dosage: 44 MCG, 3 IN 1 WEEKS, SUBCUTANEOUS
     Route: 058
     Dates: start: 20060627, end: 20060902
  2. LIPITOR [Concomitant]
  3. ANTIHYPERTENSIVES-ANTIHYPERTENSIVES) [Concomitant]

REACTIONS (2)
  - CARDIAC TAMPONADE [None]
  - MYOCARDIAL INFARCTION [None]
